FAERS Safety Report 20906414 (Version 1)
Quarter: 2022Q2

REPORT INFORMATION
  Report Type: Spontaneous
  Country: US (occurrence: None)
  Receive Date: 20220602
  Receipt Date: 20220602
  Transmission Date: 20220720
  Serious: Yes (Hospitalization)
  Sender: FDA-Public Use
  Company Number: None

PATIENT
  Age: 70 Year
  Sex: Female
  Weight: 63.96 kg

DRUGS (14)
  1. DEXAMETHASONE [Suspect]
     Active Substance: DEXAMETHASONE
     Indication: Plasma cell myeloma
     Route: 048
     Dates: start: 20220412
  2. VELCADE [Suspect]
     Active Substance: BORTEZOMIB
     Indication: Plasma cell myeloma
     Route: 058
     Dates: start: 20220412
  3. ACETAMINOPHEN [Concomitant]
     Active Substance: ACETAMINOPHEN
  4. BREO ELLIPTA [Concomitant]
     Active Substance: FLUTICASONE FUROATE\VILANTEROL TRIFENATATE
  5. CARVEDILOL [Concomitant]
     Active Substance: CARVEDILOL
  6. DEXAMETHASONE [Concomitant]
     Active Substance: DEXAMETHASONE
  7. LEVOTHYROXINE [Concomitant]
     Active Substance: LEVOTHYROXINE
  8. MIRALAX [Concomitant]
     Active Substance: POLYETHYLENE GLYCOL 3350
  9. OXYCODONE [Concomitant]
     Active Substance: OXYCODONE
  10. ROSUVASTATIN [Concomitant]
     Active Substance: ROSUVASTATIN
  11. SENNA S [Concomitant]
     Active Substance: DOCUSATE SODIUM\SENNA LEAF
  12. VELCADE [Concomitant]
     Active Substance: BORTEZOMIB
  13. VENTOLIN [Concomitant]
     Active Substance: ALBUTEROL SULFATE
  14. ZOLEDRONIC ACID [Concomitant]
     Active Substance: ZOLEDRONIC ACID

REACTIONS (1)
  - Hospitalisation [None]
